FAERS Safety Report 18655631 (Version 3)
Quarter: 2021Q1

REPORT INFORMATION
  Report Type: Spontaneous
  Country: US (occurrence: US)
  Receive Date: 20201223
  Receipt Date: 20210322
  Transmission Date: 20210419
  Serious: Yes (Hospitalization)
  Sender: FDA-Public Use
  Company Number: US-PFIZER INC-2020506552

PATIENT
  Sex: Female

DRUGS (1)
  1. LIPITOR [Suspect]
     Active Substance: ATORVASTATIN CALCIUM
     Indication: BLOOD CHOLESTEROL
     Dosage: UNK

REACTIONS (8)
  - Illness [Not Recovered/Not Resolved]
  - Lung disorder [Unknown]
  - Depressed mood [Not Recovered/Not Resolved]
  - Pain [Unknown]
  - Gait inability [Recovered/Resolved]
  - Myopathy [Not Recovered/Not Resolved]
  - Diaphragmatic disorder [Unknown]
  - COVID-19 [Unknown]
